FAERS Safety Report 15523379 (Version 2)
Quarter: 2018Q4

REPORT INFORMATION
  Report Type: Report from Study
  Country: BR (occurrence: BR)
  Receive Date: 20181018
  Receipt Date: 20181106
  Transmission Date: 20190205
  Serious: Yes (Other)
  Sender: FDA-Public Use
  Company Number: PHHY2018BR125726

PATIENT
  Age: 75 Year
  Sex: Female
  Weight: 84 kg

DRUGS (1)
  1. AZORGA [Suspect]
     Active Substance: BRINZOLAMIDE\TIMOLOL MALEATE
     Indication: GLAUCOMA
     Dosage: 1 GTT, BID
     Route: 047
     Dates: start: 2000

REACTIONS (6)
  - Headache [Unknown]
  - Myopia [Unknown]
  - Vision blurred [Unknown]
  - Intraocular pressure increased [Unknown]
  - Drug ineffective [Unknown]
  - Ocular fistula [Recovering/Resolving]

NARRATIVE: CASE EVENT DATE: 20180924
